FAERS Safety Report 5269888-9 (Version None)
Quarter: 2007Q1

REPORT INFORMATION
  Report Type: 
  Country: None (occurrence: None)
  Receive Date: 20070320
  Receipt Date: 20070313
  Transmission Date: 20070707
  Serious: Yes (Life-Threatening)
  Sender: FDA-Public Use
  Company Number: FR-GLAXOSMITHKLINE-B0462275A

PATIENT
  Age: 74 Year
  Sex: Female
  Weight: 99 kg

DRUGS (14)
  1. AUGMENTIN '125' [Suspect]
     Dosage: 2G THREE TIMES PER DAY
     Route: 042
     Dates: start: 20070208, end: 20070209
  2. OMEPRAZOLE [Suspect]
     Dosage: 20MG PER DAY
     Route: 042
     Dates: start: 20070206, end: 20070209
  3. LASIX [Concomitant]
     Dosage: 125MG PER DAY
     Route: 042
     Dates: end: 20070209
  4. HYPNOVEL [Concomitant]
     Dosage: 10MGH UNKNOWN
     Route: 042
     Dates: start: 20070208, end: 20070209
  5. SUFENTA [Concomitant]
     Route: 042
     Dates: start: 20070208, end: 20070209
  6. SOLU-MEDROL [Concomitant]
     Dosage: 40MG PER DAY
     Route: 042
  7. INSULINE [Concomitant]
  8. BORIC ACID EYE WASHES [Concomitant]
  9. POVIDONE [Concomitant]
  10. HEXTRIL [Concomitant]
  11. SOAP [Concomitant]
  12. ALMOND OIL [Concomitant]
  13. RED BLOOD CELLS [Concomitant]
     Dates: start: 20070208, end: 20070209
  14. ANESTHESIA [Concomitant]
     Indication: ABDOMINAL EXPLORATION
     Dates: end: 20070208

REACTIONS (1)
  - ANGIOEDEMA [None]
